FAERS Safety Report 7299990-1 (Version None)
Quarter: 2011Q1

REPORT INFORMATION
  Report Type: 
  Country: None (occurrence: None)
  Receive Date: 20110217
  Receipt Date: 20110202
  Transmission Date: 20110831
  Serious: Yes (Other)
  Sender: FDA-Public Use
  Company Number: US-SANOFI-AVENTIS-2010SA075483

PATIENT
  Age: 48 Year
  Sex: Male

DRUGS (3)
  1. LANTUS [Suspect]
     Dosage: DOSE:84 UNIT(S)
     Route: 058
  2. SOLOSTAR [Suspect]
  3. NOVOLOG [Concomitant]

REACTIONS (4)
  - PRODUCT QUALITY ISSUE [None]
  - DEVICE MALFUNCTION [None]
  - BLOOD GLUCOSE INCREASED [None]
  - INJECTION SITE PAIN [None]
